FAERS Safety Report 11506089 (Version 1)
Quarter: 2015Q3

REPORT INFORMATION
  Report Type: Spontaneous
  Country: US (occurrence: US)
  Receive Date: 20150915
  Receipt Date: 20150915
  Transmission Date: 20151125
  Serious: No
  Sender: FDA-Public Use
  Company Number: US-ROCHE-768645

PATIENT
  Age: 24 Year
  Sex: Male

DRUGS (4)
  1. RIBAVIRIN. [Suspect]
     Active Substance: RIBAVIRIN
     Indication: HEPATITIS C
     Dosage: DAILY IN DIVIDED DOSES
     Route: 048
  2. RIBAVIRIN. [Suspect]
     Active Substance: RIBAVIRIN
     Dosage: RIBASPHERE AND RIBAPAK DISPENSED BY VA DAILY IN DIVIDED DOSES
     Route: 048
  3. PEGASYS [Suspect]
     Active Substance: PEGINTERFERON ALFA-2A
     Dosage: PRE FILLED SYRINGE
     Route: 058
  4. PEGASYS [Suspect]
     Active Substance: PEGINTERFERON ALFA-2A
     Indication: HEPATITIS C
     Dosage: PRE FILLED SYRINGE
     Route: 058

REACTIONS (8)
  - Myalgia [Unknown]
  - Abdominal pain upper [Unknown]
  - Drug dose omission [Unknown]
  - Tremor [Unknown]
  - Pain [Unknown]
  - Stomatitis [Not Recovered/Not Resolved]
  - Headache [Unknown]
  - Chills [Unknown]

NARRATIVE: CASE EVENT DATE: 20110325
